FAERS Safety Report 15783697 (Version 1)
Quarter: 2019Q1

REPORT INFORMATION
  Report Type: Spontaneous
  Country: US (occurrence: US)
  Receive Date: 20190102
  Receipt Date: 20190102
  Transmission Date: 20190417
  Serious: No
  Sender: FDA-Public Use
  Company Number: US-CUMBERLAND PHARMACEUTICALS INC.-2060782

PATIENT
  Age: 31 Year
  Sex: Male

DRUGS (1)
  1. ACETADOTE [Suspect]
     Active Substance: ACETYLCYSTEINE
     Indication: OVERDOSE
     Route: 042
     Dates: start: 20181224, end: 20181227

REACTIONS (1)
  - Administration site extravasation [Recovered/Resolved]

NARRATIVE: CASE EVENT DATE: 20181227
